FAERS Safety Report 12411881 (Version 1)
Quarter: 2016Q2

REPORT INFORMATION
  Report Type: Spontaneous
  Country: US (occurrence: US)
  Receive Date: 20160527
  Receipt Date: 20160527
  Transmission Date: 20160815
  Serious: No
  Sender: FDA-Public Use
  Company Number: US-JNJFOC-20160516953

PATIENT
  Age: 68 Year
  Sex: Female
  Weight: 62.6 kg

DRUGS (3)
  1. SOMA [Concomitant]
     Active Substance: CARISOPRODOL
     Indication: MUSCLE RELAXANT THERAPY
     Route: 048
     Dates: start: 201604
  2. DURAGESIC [Suspect]
     Active Substance: FENTANYL
     Indication: SPINAL COLUMN INJURY
     Route: 062
     Dates: start: 201604, end: 201604
  3. DURAGESIC [Suspect]
     Active Substance: FENTANYL
     Indication: SPINAL COLUMN INJURY
     Route: 062
     Dates: start: 201604

REACTIONS (5)
  - Pain [Recovered/Resolved]
  - Vomiting [Recovered/Resolved]
  - Blood pressure increased [Recovered/Resolved]
  - Treatment noncompliance [Unknown]
  - Application site reaction [Recovered/Resolved]

NARRATIVE: CASE EVENT DATE: 201604
